FAERS Safety Report 8597875-1 (Version None)
Quarter: 2012Q3

REPORT INFORMATION
  Report Type: 
  Country: None (occurrence: None)
  Receive Date: 20120816
  Receipt Date: 20120815
  Transmission Date: 20120928
  Serious: Yes (Death)
  Sender: FDA-Public Use
  Company Number: PHEH2012US015975

PATIENT
  Sex: Male

DRUGS (3)
  1. AFINITOR [Suspect]
     Dosage: 10 MG,
     Route: 048
     Dates: start: 20120502
  2. TARCEVA [Concomitant]
     Dosage: 150 MG, UNK
  3. VOTRIENT [Concomitant]
     Dosage: 200 MG, UNK

REACTIONS (1)
  - DEATH [None]
